FAERS Safety Report 9266784 (Version 2)
Quarter: 2013Q2

REPORT INFORMATION
  Report Type: Spontaneous
  Country: US (occurrence: US)
  Receive Date: 20130502
  Receipt Date: 20130522
  Transmission Date: 20140414
  Serious: Yes (Other)
  Sender: FDA-Public Use
  Company Number: US-PFIZER INC-2013134979

PATIENT
  Sex: Female

DRUGS (8)
  1. NEURONTIN [Suspect]
     Indication: MUSCLE SPASMS
     Dosage: UNK
  2. NEURONTIN [Suspect]
     Indication: BACK PAIN
  3. GABAPENTIN [Suspect]
     Indication: MUSCLE SPASMS
     Dosage: 800 MG
  4. GABAPENTIN [Suspect]
     Indication: BACK PAIN
  5. GEODON [Suspect]
     Indication: MUSCLE SPASMS
     Dosage: UNK
  6. GEODON [Suspect]
     Indication: PAIN
  7. ZIPRASIDONE HCL [Suspect]
     Indication: MUSCLE SPASMS
     Dosage: UNK
  8. ZIPRASIDONE HCL [Suspect]
     Indication: PAIN

REACTIONS (5)
  - Drug hypersensitivity [Unknown]
  - Swelling [Unknown]
  - Dyspnoea [Unknown]
  - Dyskinesia [Unknown]
  - Off label use [Unknown]
